FAERS Safety Report 19710458 (Version 1)
Quarter: 2021Q3

REPORT INFORMATION
  Report Type: Report from Study
  Country: None (occurrence: DO)
  Receive Date: 20210817
  Receipt Date: 20210817
  Transmission Date: 20211014
  Serious: Yes (Hospitalization, Other)
  Sender: FDA-Public Use
  Company Number: DO-ABBVIE-21K-279-3999756-00

PATIENT
  Age: 44 Year
  Sex: Female
  Weight: 64 kg

DRUGS (1)
  1. HUMIRA [Suspect]
     Active Substance: ADALIMUMAB
     Indication: UVEITIS
     Route: 058
     Dates: start: 20201014, end: 20210712

REACTIONS (4)
  - Headache [Recovering/Resolving]
  - Urinary tract infection [Recovering/Resolving]
  - Demyelinating polyneuropathy [Not Recovered/Not Resolved]
  - Neuropathy peripheral [Not Recovered/Not Resolved]

NARRATIVE: CASE EVENT DATE: 2021
